FAERS Safety Report 9710062 (Version 2)
Quarter: 2014Q1

REPORT INFORMATION
  Report Type: Spontaneous
  Country: AU (occurrence: AU)
  Receive Date: 20131126
  Receipt Date: 20140128
  Transmission Date: 20141002
  Serious: Yes (Other)
  Sender: FDA-Public Use
  Company Number: AU-ROCHE-1307247

PATIENT
  Age: 72 Year
  Sex: 0

DRUGS (1)
  1. ACTILYSE [Suspect]
     Indication: ISCHAEMIC CEREBRAL INFARCTION
     Route: 065
     Dates: start: 20120605

REACTIONS (4)
  - Deep vein thrombosis [Unknown]
  - Ileus [Unknown]
  - Haemorrhagic transformation stroke [Unknown]
  - Dysuria [Unknown]
